FAERS Safety Report 11218729 (Version 1)
Quarter: 2015Q2

REPORT INFORMATION
  Report Type: Spontaneous
  Country: US (occurrence: GB)
  Receive Date: 20150625
  Receipt Date: 20150625
  Transmission Date: 20150821
  Serious: Yes (Other)
  Sender: FDA-Public Use
  Company Number: GB-FRI-1000077723

PATIENT
  Age: 79 Year
  Sex: Male

DRUGS (12)
  1. INDAPAMIDE. [Concomitant]
     Active Substance: INDAPAMIDE
  2. LANSOPRAZOLE. [Concomitant]
     Active Substance: LANSOPRAZOLE
  3. ATORVASTATIN [Concomitant]
     Active Substance: ATORVASTATIN
  4. ACLIDINIUM [Suspect]
     Active Substance: ACLIDINIUM BROMIDE
     Indication: CHRONIC OBSTRUCTIVE PULMONARY DISEASE
     Dosage: 1 PUFF, TWO TIMES A DAY
     Route: 055
     Dates: start: 20150429, end: 20150601
  5. LORATADINE. [Concomitant]
     Active Substance: LORATADINE
  6. PARACETAMOL [Concomitant]
     Active Substance: ACETAMINOPHEN
  7. VENTOLIN [Concomitant]
     Active Substance: ALBUTEROL SULFATE
  8. FENBID [Concomitant]
     Active Substance: IBUPROFEN
  9. FYBOGEL [Concomitant]
     Active Substance: PLANTAGO OVATA SEED
  10. SYMBICORT [Concomitant]
     Active Substance: BUDESONIDE\FORMOTEROL FUMARATE DIHYDRATE
  11. CANDESARTAN [Concomitant]
     Active Substance: CANDESARTAN
  12. PREDNISOLONE. [Concomitant]
     Active Substance: PREDNISOLONE

REACTIONS (4)
  - Disorientation [Recovered/Resolved]
  - Dyspnoea [Recovered/Resolved]
  - Hypersensitivity [Recovered/Resolved]
  - Chest discomfort [Recovered/Resolved]

NARRATIVE: CASE EVENT DATE: 20150429
